FAERS Safety Report 25050416 (Version 2)
Quarter: 2025Q1

REPORT INFORMATION
  Report Type: Spontaneous
  Country: CN (occurrence: CN)
  Receive Date: 20250307
  Receipt Date: 20250320
  Transmission Date: 20250408
  Serious: Yes (Other)
  Sender: GILEAD
  Company Number: CN-GILEAD-2025-0706365

PATIENT
  Age: 60 Year
  Sex: Male

DRUGS (1)
  1. VIREAD [Suspect]
     Active Substance: TENOFOVIR DISOPROXIL FUMARATE
     Indication: Chronic hepatitis B
     Dosage: 300 MG, QD
     Route: 065

REACTIONS (1)
  - Glomerulonephritis membranoproliferative [Recovering/Resolving]
